FAERS Safety Report 5927886-3 (Version None)
Quarter: 2008Q4

REPORT INFORMATION
  Report Type: 
  Country: None (occurrence: None)
  Receive Date: 20081022
  Receipt Date: 20081022
  Transmission Date: 20090506
  Serious: No
  Sender: FDA-Public Use
  Company Number: None

PATIENT
  Sex: Female
  Weight: 68.0396 kg

DRUGS (2)
  1. GEODON [Suspect]
     Indication: BIPOLAR DISORDER
     Dosage: 40 MG ONE PILL A DAY PO
     Route: 048
     Dates: start: 20040101, end: 20050101
  2. GEODON [Suspect]
     Indication: SCHIZOPHRENIA
     Dosage: 40 MG ONE PILL A DAY PO
     Route: 048
     Dates: start: 20040101, end: 20050101

REACTIONS (3)
  - DYSKINESIA [None]
  - SPEECH DISORDER [None]
  - TONGUE DISORDER [None]
